FAERS Safety Report 8252650-2 (Version None)
Quarter: 2012Q2

REPORT INFORMATION
  Report Type: 
  Country: None (occurrence: None)
  Receive Date: 20120402
  Receipt Date: 20110812
  Transmission Date: 20120825
  Serious: No
  Sender: FDA-Public Use
  Company Number: US-ABBOTT-11P-163-0846768-00

PATIENT
  Age: 51 Year
  Sex: Male
  Weight: 124.85 kg

DRUGS (3)
  1. ANDROGEL [Suspect]
     Indication: LIBIDO DECREASED
     Dosage: 5 G PACKETS
     Dates: start: 20110808
  2. ANDROGEL [Suspect]
     Indication: SEXUAL DYSFUNCTION
  3. VIAGRA [Concomitant]
     Indication: PRODUCT USED FOR UNKNOWN INDICATION

REACTIONS (2)
  - DRUG INEFFECTIVE [None]
  - LIBIDO DECREASED [None]
